FAERS Safety Report 8773253 (Version 1)
Quarter: 2012Q4

REPORT INFORMATION
  Report Type: 
  Country: GB (occurrence: GB)
  Receive Date: 20120907
  Receipt Date: 20120907
  Transmission Date: 20130627
  Serious: Yes (Other)
  Sender: FDA-Public Use
  Company Number: PHFR2012GB004836

PATIENT
  Age: 82 Year
  Sex: Female

DRUGS (4)
  1. TIMOLOL [Suspect]
  2. PREDNISOLONE [Suspect]
  3. DEXAMETHASONE [Suspect]
  4. LOTEMAX [Suspect]
     Indication: FUNGAL INFECTION
     Dosage: 2 gtt, daily
     Route: 047
     Dates: start: 201006

REACTIONS (1)
  - Diabetes mellitus [Unknown]
